FAERS Safety Report 22520197 (Version 5)
Quarter: 2023Q4

REPORT INFORMATION
  Report Type: Report from Study
  Country: GB (occurrence: GB)
  Receive Date: 20230605
  Receipt Date: 20231013
  Transmission Date: 20240110
  Serious: Yes (Hospitalization)
  Sender: FDA-Public Use
  Company Number: GB-IPSEN Group, Research and Development-2021-21640

PATIENT
  Age: 67 Year
  Sex: Male

DRUGS (2)
  1. LANREOTIDE ACETATE [Suspect]
     Active Substance: LANREOTIDE ACETATE
     Indication: Neuroendocrine tumour
     Dosage: 120MG/0.5ML
     Route: 058
  2. IBUPROFEN [Concomitant]
     Active Substance: IBUPROFEN
     Route: 065

REACTIONS (24)
  - Unevaluable event [Unknown]
  - Hospitalisation [Unknown]
  - Cardiac disorder [Unknown]
  - Eructation [Not Recovered/Not Resolved]
  - Flatulence [Recovering/Resolving]
  - Abdominal distension [Recovering/Resolving]
  - Abdominal pain upper [Not Recovered/Not Resolved]
  - Blood pressure increased [Not Recovered/Not Resolved]
  - Diarrhoea [Not Recovered/Not Resolved]
  - Weight decreased [Not Recovered/Not Resolved]
  - Asthenia [Not Recovered/Not Resolved]
  - Diarrhoea [Unknown]
  - Frequent bowel movements [Unknown]
  - Asthenia [Unknown]
  - Dry mouth [Unknown]
  - Drug effect less than expected [Unknown]
  - Adverse event [Unknown]
  - Abnormal faeces [Unknown]
  - Hot flush [Unknown]
  - Weight decreased [Unknown]
  - Malnutrition [Unknown]
  - Injection site pain [Unknown]
  - Injection site mass [Unknown]
  - Fall [Unknown]

NARRATIVE: CASE EVENT DATE: 20220701
